FAERS Safety Report 18104791 (Version 3)
Quarter: 2020Q3

REPORT INFORMATION
  Report Type: Report from Study
  Country: GB (occurrence: GB)
  Receive Date: 20200804
  Receipt Date: 20200917
  Transmission Date: 20201103
  Serious: Yes (Other)
  Sender: FDA-Public Use
  Company Number: GB-ALEXION-A202010897

PATIENT
  Sex: Female

DRUGS (1)
  1. STRENSIQ [Suspect]
     Active Substance: ASFOTASE ALFA
     Indication: HYPOPHOSPHATASIA
     Dosage: 70 MG, QD
     Route: 058
     Dates: start: 20200722, end: 20200723

REACTIONS (1)
  - Oral dysaesthesia [Recovered/Resolved]

NARRATIVE: CASE EVENT DATE: 20200722
